FAERS Safety Report 4706662-3 (Version None)
Quarter: 2005Q3

REPORT INFORMATION
  Report Type: 
  Country: None (occurrence: None)
  Receive Date: 20050705
  Receipt Date: 20050623
  Transmission Date: 20060218
  Serious: Yes (Hospitalization)
  Sender: FDA-Public Use
  Company Number: BR-ROCHE-408915

PATIENT
  Age: 15 Year
  Sex: Female

DRUGS (2)
  1. ROACUTAN [Suspect]
     Indication: ACNE
     Route: 048
     Dates: start: 20050515, end: 20050615
  2. ROACUTAN [Suspect]
     Route: 048
     Dates: start: 20050615, end: 20050615

REACTIONS (1)
  - ORAL INFECTION [None]
